FAERS Safety Report 9443637 (Version 1)
Quarter: 2013Q3

REPORT INFORMATION
  Report Type: Spontaneous
  Country: FR (occurrence: None)
  Receive Date: 20130802
  Receipt Date: 20130802
  Transmission Date: 20140515
  Serious: Yes (Hospitalization)
  Sender: FDA-Public Use
  Company Number: TPA2013A07241

PATIENT
  Age: 62 Year
  Sex: Male

DRUGS (4)
  1. ADENURIC (FEBUXOSTAT) [Suspect]
     Indication: PRODUCT USED FOR UNKNOWN INDICATION
     Route: 048
     Dates: start: 20130322, end: 20130521
  2. COLCHIMAX (COLCHICINE, TIEMONIUM METHYSULPHATE, PAPAVER SOMNIFERUM POWDER) [Suspect]
     Indication: PRODUCT USED FOR UNKNOWN INDICATION
     Route: 048
     Dates: end: 20130521
  3. VOLTARENE [Suspect]
     Route: 048
     Dates: end: 20130521
  4. INEXIUM [Suspect]
     Route: 048
     Dates: start: 20130518, end: 20130521

REACTIONS (5)
  - Lymphopenia [None]
  - Neutropenia [None]
  - Leukopenia [None]
  - Transaminases increased [None]
  - Blood alkaline phosphatase increased [None]
